FAERS Safety Report 4345673-7 (Version None)
Quarter: 2004Q2

REPORT INFORMATION
  Report Type: 
  Country: None (occurrence: None)
  Receive Date: 20040421
  Receipt Date: 20040215
  Transmission Date: 20050107
  Serious: Yes (Other)
  Sender: FDA-Public Use
  Company Number: KII-2004-0009500

PATIENT
  Age: 24 Year
  Sex: Male

DRUGS (2)
  1. OXYCONTIN [Suspect]
  2. BENZODIAZEPINE DERIVATIVES (BENZODIAZEPINE DERIVATIVES) [Suspect]

REACTIONS (4)
  - COMA [None]
  - MEDICATION ERROR [None]
  - POLYSUBSTANCE ABUSE [None]
  - SOMNOLENCE [None]
